FAERS Safety Report 6269503-1 (Version None)
Quarter: 2009Q3

REPORT INFORMATION
  Report Type: 
  Country: None (occurrence: None)
  Receive Date: 20090714
  Receipt Date: 20090701
  Transmission Date: 20100115
  Serious: Yes (Other)
  Sender: FDA-Public Use
  Company Number: DE-1169983

PATIENT
  Age: 81 Year
  Sex: Female

DRUGS (2)
  1. ISOPTO MAX (MAXITROL) OPHTHALMIC SUSPENSION EYE DROPS, [Suspect]
     Indication: POSTOPERATIVE CARE
     Dosage: 1 GTT 5X/DAY OPHTHALMIC
     Route: 047
     Dates: start: 20090525, end: 20090602
  2. DET MS     (DIHYDROERGOTAMINE MESILATE) [Concomitant]

REACTIONS (3)
  - CORNEAL EPITHELIUM DEFECT [None]
  - CORNEAL EROSION [None]
  - PUNCTATE KERATITIS [None]
